FAERS Safety Report 7089478-5 (Version None)
Quarter: 2010Q4

REPORT INFORMATION
  Report Type: 
  Country: None (occurrence: None)
  Receive Date: 20101108
  Receipt Date: 20101022
  Transmission Date: 20110411
  Serious: Yes (Hospitalization)
  Sender: FDA-Public Use
  Company Number: PHHY2010JP58167

PATIENT
  Sex: Female
  Weight: 73 kg

DRUGS (20)
  1. RASILEZ [Suspect]
     Indication: HYPERTENSION
     Dosage: 150 MG
     Route: 048
     Dates: start: 20100407, end: 20100902
  2. TETRAMIDE [Suspect]
     Dosage: 40 MG
     Route: 048
     Dates: start: 20100601, end: 20100825
  3. TETRAMIDE [Suspect]
     Dosage: 20MG
     Route: 048
     Dates: end: 20100830
  4. AMLODIPINE [Concomitant]
     Dosage: 2.5 MG
     Route: 048
     Dates: start: 20081022
  5. ALDACTONE [Concomitant]
     Dosage: 25 MG
     Route: 048
     Dates: start: 20100721
  6. ALOSENN [Concomitant]
     Dosage: 1MG
  7. GASTER D [Concomitant]
     Dosage: 20 MG
  8. SERMION [Concomitant]
     Dosage: 15MG
  9. ZOLOFT [Concomitant]
     Dosage: 75MG
  10. DESYREL [Concomitant]
     Dosage: 100MG
  11. PARIET [Concomitant]
     Dosage: 10MG
     Route: 048
     Dates: start: 20081022
  12. PYDOXAL [Concomitant]
     Dosage: 40MG
  13. FLAVITAN [Concomitant]
     Dosage: 20MG
  14. CYANOCOBALAMIN [Concomitant]
  15. LASIX [Concomitant]
     Dosage: 20 MG DAY
     Route: 048
     Dates: start: 20090520, end: 20100825
  16. LASIX [Concomitant]
     Dosage: 40 MG/ DAY
     Route: 048
     Dates: end: 20100831
  17. LIPITOR [Concomitant]
     Dosage: 5MG
     Route: 048
     Dates: start: 20090701
  18. LENDORMIN [Concomitant]
     Dosage: 0.25MG
  19. RENIVACE [Concomitant]
     Dosage: 5MG
  20. RENIVACE [Concomitant]
     Dosage: 2.5 MG
     Route: 048

REACTIONS (5)
  - AORTIC CALCIFICATION [None]
  - DIVERTICULUM INTESTINAL [None]
  - HIATUS HERNIA [None]
  - OEDEMA [None]
  - WEIGHT INCREASED [None]
